FAERS Safety Report 5868853-8 (Version None)
Quarter: 2008Q3

REPORT INFORMATION
  Report Type: 
  Country: None (occurrence: None)
  Receive Date: 20080902
  Receipt Date: 20080902
  Transmission Date: 20090109
  Serious: Yes (Other)
  Sender: FDA-Public Use
  Company Number: None

PATIENT
  Age: 10 Year
  Sex: Female
  Weight: 54.4316 kg

DRUGS (2)
  1. SINGULAIR [Suspect]
     Indication: ASTHMA
     Dosage: 2 TABLETS DAILY PO
     Route: 048
     Dates: start: 20030101, end: 20080807
  2. SINGULAIR [Suspect]
     Indication: UPPER RESPIRATORY TRACT INFECTION
     Dosage: 2 TABLETS DAILY PO
     Route: 048
     Dates: start: 20030101, end: 20080807

REACTIONS (9)
  - ANOREXIA [None]
  - ANXIETY [None]
  - DIARRHOEA [None]
  - INSOMNIA [None]
  - OBSESSIVE THOUGHTS [None]
  - PANIC ATTACK [None]
  - SUICIDAL IDEATION [None]
  - THINKING ABNORMAL [None]
  - WEIGHT DECREASED [None]
